FAERS Safety Report 7344323-5 (Version None)
Quarter: 2011Q1

REPORT INFORMATION
  Report Type: 
  Country: None (occurrence: None)
  Receive Date: 20110310
  Receipt Date: 20101115
  Transmission Date: 20110831
  Serious: No
  Sender: FDA-Public Use
  Company Number: A0892491A

PATIENT
  Age: 56 Year
  Sex: Female

DRUGS (4)
  1. NICORETTE [Suspect]
  2. NICODERM CQ [Suspect]
  3. NICODERM CQ [Suspect]
  4. NICORETTE [Suspect]

REACTIONS (5)
  - DRUG ADMINISTRATION ERROR [None]
  - RESTLESSNESS [None]
  - PRODUCT QUALITY ISSUE [None]
  - OBSESSIVE THOUGHTS [None]
  - ABNORMAL DREAMS [None]
